FAERS Safety Report 9157444 (Version 1)
Quarter: 2013Q1

REPORT INFORMATION
  Report Type: Spontaneous
  Country: IT (occurrence: None)
  Receive Date: 20130212
  Receipt Date: 20130212
  Transmission Date: 20140127
  Serious: Yes (Hospitalization)
  Sender: FDA-Public Use
  Company Number: AUR-APL-2013-01156

PATIENT
  Age: 68 Year
  Sex: Male

DRUGS (7)
  1. SERTRALINE (SERTRALINE) (SERTRALINE) [Suspect]
     Indication: ANXIETY
     Route: 048
     Dates: start: 20130112, end: 20130119
  2. ASCRIPTIN (ASCRIPTIN) [Concomitant]
  3. SIVASTIN (SIMVASTATIN) [Concomitant]
  4. OMNIC (TAMSULOSIN HYDROCHLORIDE) [Concomitant]
  5. XANAX (ALPRAZOLAM) [Concomitant]
  6. ENAPREN (ENALAPRIL MALEATE) [Concomitant]
  7. ATENOLOL (ATENOLOL) [Concomitant]

REACTIONS (5)
  - Asthenia [None]
  - Fatigue [None]
  - Dizziness [None]
  - Confusional state [None]
  - Decreased appetite [None]
